FAERS Safety Report 9820258 (Version 2)
Quarter: 2014Q1

REPORT INFORMATION
  Report Type: Spontaneous
  Country: US (occurrence: US)
  Receive Date: 20140116
  Receipt Date: 20140116
  Transmission Date: 20141002
  Serious: Yes (Other)
  Sender: FDA-Public Use
  Company Number: US-SA-2014SA002461

PATIENT
  Age: 68 Year
  Sex: Female

DRUGS (2)
  1. LANTUS SOLOSTAR [Suspect]
     Indication: DIABETES MELLITUS
     Dosage: STARTED LESS THAN 3 MONTHS DOSE:10 UNIT(S)
     Route: 058
  2. SOLOSTAR [Concomitant]
     Indication: DIABETES MELLITUS
     Dosage: STARTED LESS THAN 3 MONTHS

REACTIONS (4)
  - Tendon rupture [Unknown]
  - Gait disturbance [Unknown]
  - Bone density decreased [Unknown]
  - Glycosylated haemoglobin increased [Not Recovered/Not Resolved]
